FAERS Safety Report 6316980-3 (Version None)
Quarter: 2009Q3

REPORT INFORMATION
  Report Type: 
  Country: None (occurrence: None)
  Receive Date: 20090820
  Receipt Date: 20090811
  Transmission Date: 20100115
  Serious: Yes (Other)
  Sender: FDA-Public Use
  Company Number: IN-CELGENEUS-078-20785-09080852

PATIENT

DRUGS (1)
  1. THALOMID [Suspect]
     Indication: ERYTHEMA NODOSUM LEPROSUM
     Dosage: 300 MG DAILY FOR 1 WEEK; DECREASED BY 50 MG EVERY TWO WEEKS
     Route: 048

REACTIONS (8)
  - AMOEBIC DYSENTERY [None]
  - CONSTIPATION [None]
  - DISTURBANCE IN ATTENTION [None]
  - LEUKOCYTOCLASTIC VASCULITIS [None]
  - PRURITUS [None]
  - RASH [None]
  - SOMNOLENCE [None]
  - TREMOR [None]
